FAERS Safety Report 13373038 (Version 1)
Quarter: 2017Q1

REPORT INFORMATION
  Report Type: Spontaneous
  Country: US (occurrence: US)
  Receive Date: 20170325
  Receipt Date: 20170325
  Transmission Date: 20170429
  Serious: Yes (Hospitalization)
  Sender: FDA-Public Use
  Company Number: None

PATIENT
  Age: 75 Year
  Sex: Female
  Weight: 60 kg

DRUGS (15)
  1. LOPRESSOR [Concomitant]
     Active Substance: METOPROLOL TARTRATE
  2. ASPIRIN. [Concomitant]
     Active Substance: ASPIRIN
  3. CHOLECALCIFEROL (VITAMIN D3) [Concomitant]
  4. APIXABAN [Suspect]
     Active Substance: APIXABAN
     Indication: DEEP VEIN THROMBOSIS
     Route: 048
  5. KLOR-CON [Concomitant]
     Active Substance: POTASSIUM CHLORIDE
  6. HYDROCORTISONE (CORTIZONE) [Concomitant]
  7. LISINOPRIL (ZESTRIL) [Concomitant]
  8. HYDRALAZINE (APRESOLINE) [Concomitant]
  9. OMEGA-3 FATTY ACIDS (FISH OIL) [Concomitant]
  10. LIPITOR [Concomitant]
     Active Substance: ATORVASTATIN CALCIUM
  11. NIFEDIPINE (PROCARDIA XL) [Concomitant]
  12. FERROUS SULFATE. [Concomitant]
     Active Substance: FERROUS SULFATE
  13. LASIX [Concomitant]
     Active Substance: FUROSEMIDE
  14. PROTONIX [Concomitant]
     Active Substance: PANTOPRAZOLE SODIUM
  15. HYDROCODONE-ACETAMINOPHEN (NORCO) [Concomitant]

REACTIONS (6)
  - Fatigue [None]
  - Chest pain [None]
  - Asthenia [None]
  - Melaena [None]
  - Dyspnoea exertional [None]
  - Malaise [None]

NARRATIVE: CASE EVENT DATE: 20170209
